FAERS Safety Report 7742830-4 (Version None)
Quarter: 2011Q3

REPORT INFORMATION
  Report Type: 
  Country: None (occurrence: None)
  Receive Date: 20110906
  Receipt Date: 20110901
  Transmission Date: 20111222
  Serious: Yes (Death)
  Sender: FDA-Public Use
  Company Number: 2011SP041307

PATIENT
  Age: 50 Year
  Sex: Female

DRUGS (2)
  1. PEG-INTRON (PEGINTERFERON ALFA-2B /015403001/) [Suspect]
     Indication: HEPATITIS C
     Dosage: SC
     Route: 058
     Dates: start: 20110601, end: 20110801
  2. REBETOL [Suspect]
     Indication: HEPATITIS C
     Dosage: PO
     Route: 048
     Dates: start: 20110601, end: 20110801

REACTIONS (1)
  - SUDDEN DEATH [None]
